FAERS Safety Report 6160938-4 (Version None)
Quarter: 2009Q2

REPORT INFORMATION
  Report Type: 
  Country: None (occurrence: None)
  Receive Date: 20090417
  Receipt Date: 20090417
  Transmission Date: 20091009
  Serious: Yes (Life-Threatening)
  Sender: FDA-Public Use
  Company Number: None

PATIENT
  Sex: Female
  Weight: 48.9885 kg

DRUGS (1)
  1. CIPROFLOXACIN [Suspect]
     Indication: NASOPHARYNGITIS
     Dosage: 500 MG 14 TABLETS EVERY 4 HRS
     Dates: start: 20090311

REACTIONS (2)
  - ARTHRALGIA [None]
  - COUGH [None]
